FAERS Safety Report 14656493 (Version 2)
Quarter: 2018Q2

REPORT INFORMATION
  Report Type: Spontaneous
  Country: GB (occurrence: GB)
  Receive Date: 20180319
  Receipt Date: 20180517
  Transmission Date: 20180711
  Serious: Yes (Hospitalization)
  Sender: FDA-Public Use
  Company Number: GB-PFIZER INC-2018106488

PATIENT
  Age: 74 Year
  Sex: Male

DRUGS (10)
  1. NOVORAPID [Concomitant]
     Active Substance: INSULIN ASPART
     Dosage: UNK
  2. LANTUS [Concomitant]
     Active Substance: INSULIN GLARGINE
     Dosage: UNK
  3. ATORVASTATIN CALCIUM. [Suspect]
     Active Substance: ATORVASTATIN CALCIUM
     Indication: MUSCLE SPASMS
     Dosage: 20 MG, ALTERNATE DAY
     Route: 048
     Dates: end: 20171115
  4. FENOFIBRATE MICRO [Suspect]
     Active Substance: FENOFIBRATE
     Dosage: 267 MG, 1X/DAY
     Route: 048
     Dates: end: 20171115
  5. NAFTIDROFURYL [Suspect]
     Active Substance: NAFRONYL
     Indication: PERIPHERAL VASCULAR DISORDER
     Dosage: 300 MG, 1X/DAY
     Route: 048
     Dates: start: 20171031, end: 20171110
  6. METFORMIN [Concomitant]
     Active Substance: METFORMIN HYDROCHLORIDE
     Dosage: UNK
  7. ACETYLSALICYLIC ACID [Concomitant]
     Active Substance: ASPIRIN
     Dosage: UNK
  8. LANSOPRAZOLE. [Concomitant]
     Active Substance: LANSOPRAZOLE
     Dosage: UNK
  9. HYDROXOCOBALAMIN [Concomitant]
     Active Substance: HYDROXOCOBALAMIN
     Dosage: UNK
  10. CANDESARTAN. [Concomitant]
     Active Substance: CANDESARTAN
     Dosage: UNK

REACTIONS (5)
  - Dyspnoea [Unknown]
  - Product use in unapproved indication [Unknown]
  - Liver function test abnormal [Unknown]
  - Atrial flutter [Unknown]
  - Coagulopathy [Unknown]

NARRATIVE: CASE EVENT DATE: 20171115
